FAERS Safety Report 11146666 (Version 1)
Quarter: 2015Q2

REPORT INFORMATION
  Report Type: Spontaneous
  Country: GB (occurrence: GB)
  Receive Date: 20150528
  Receipt Date: 20150528
  Transmission Date: 20150821
  Serious: Yes (Other)
  Sender: FDA-Public Use
  Company Number: PHHY2015GB060663

PATIENT
  Age: 49 Year
  Sex: Female
  Weight: 63.5 kg

DRUGS (3)
  1. MULTIVITAMIN AND MINERAL SUPPLEMENT [Concomitant]
     Active Substance: MINERALS\VITAMINS
     Indication: PRODUCT USED FOR UNKNOWN INDICATION
     Route: 065
  2. IMIGRANE [Concomitant]
     Active Substance: SUMATRIPTAN SUCCINATE
     Indication: PRODUCT USED FOR UNKNOWN INDICATION
     Route: 065
  3. MIRTAZAPINE. [Suspect]
     Active Substance: MIRTAZAPINE
     Indication: BIPOLAR DISORDER
     Dosage: 30 MG, UNK (15-30 MG)
     Route: 048
     Dates: start: 2012, end: 20150301

REACTIONS (13)
  - Migraine [Recovered/Resolved]
  - Constipation [Not Recovered/Not Resolved]
  - Blepharitis [Recovering/Resolving]
  - Pruritus [Recovered/Resolved]
  - Eye pruritus [Recovered/Resolved with Sequelae]
  - Oedema peripheral [Recovered/Resolved]
  - Nausea [Recovering/Resolving]
  - Appetite disorder [Recovering/Resolving]
  - Dry skin [Recovered/Resolved]
  - Dry eye [Recovered/Resolved with Sequelae]
  - Thirst [Recovering/Resolving]
  - Restless legs syndrome [Recovered/Resolved]
  - Tremor [Recovered/Resolved]

NARRATIVE: CASE EVENT DATE: 2012
